FAERS Safety Report 6396866-9 (Version None)
Quarter: 2009Q4

REPORT INFORMATION
  Report Type: 
  Country: None (occurrence: None)
  Receive Date: 20091012
  Receipt Date: 20090713
  Transmission Date: 20100525
  Serious: No
  Sender: FDA-Public Use
  Company Number: US-ASTRAZENECA-2009UW19634

PATIENT
  Sex: Female

DRUGS (2)
  1. SYMBICORT [Suspect]
     Dosage: HALF TO FULL DOSE
     Route: 055
  2. LITHIUM [Concomitant]

REACTIONS (3)
  - CHEST PAIN [None]
  - DEPRESSION [None]
  - MANIA [None]
